FAERS Safety Report 7928383 (Version 2)
Quarter: 2012Q4

REPORT INFORMATION
  Report Type: 
  Country: US (occurrence: US)
  Receive Date: 20110503
  Receipt Date: 20121010
  Transmission Date: 20130627
  Serious: Yes (Other)
  Sender: FDA-Public Use
  Company Number: US-ROCHE-749868

PATIENT
  Age: 37 None
  Sex: Male
  Weight: 78 kg

DRUGS (2)
  1. ACCUTANE [Suspect]
     Indication: ACNE
     Route: 065
     Dates: start: 1990, end: 1995
  2. ACCUTANE [Suspect]
     Route: 065
     Dates: start: 200201, end: 200206

REACTIONS (4)
  - Colitis ulcerative [Unknown]
  - Gastrointestinal injury [Unknown]
  - Inflammatory bowel disease [Unknown]
  - Anxiety [Unknown]
